FAERS Safety Report 4823288-1 (Version None)
Quarter: 2005Q4

REPORT INFORMATION
  Report Type: 
  Country: None (occurrence: None)
  Receive Date: 20051104
  Receipt Date: 20051024
  Transmission Date: 20060501
  Serious: Yes (Life-Threatening, Other)
  Sender: FDA-Public Use
  Company Number: 2005049901

PATIENT
  Age: 43 Year
  Sex: Male
  Weight: 90.7194 kg

DRUGS (1)
  1. FRAGMIN [Suspect]
     Indication: DEEP VEIN THROMBOSIS
     Dosage: 13000 I.U. (1 IN 1 D), SUBCUTANEOUS
     Route: 058

REACTIONS (4)
  - DRUG DISPENSING ERROR [None]
  - EPISTAXIS [None]
  - HAEMORRHAGE [None]
  - OVERDOSE [None]
